FAERS Safety Report 6583378-2 (Version None)
Quarter: 2010Q1

REPORT INFORMATION
  Report Type: 
  Country: None (occurrence: None)
  Receive Date: 20100216
  Receipt Date: 20100204
  Transmission Date: 20100710
  Serious: Yes (Other)
  Sender: FDA-Public Use
  Company Number: US-PFIZER INC-2010016250

PATIENT
  Sex: Male
  Weight: 99.773 kg

DRUGS (1)
  1. CARDURA [Suspect]
     Dosage: UNK

REACTIONS (3)
  - ALOPECIA [None]
  - FLUID RETENTION [None]
  - INTRAOCULAR PRESSURE INCREASED [None]
